FAERS Safety Report 4637038-5 (Version None)
Quarter: 2005Q2

REPORT INFORMATION
  Report Type: 
  Country: None (occurrence: None)
  Receive Date: 20050414
  Receipt Date: 20050401
  Transmission Date: 20051028
  Serious: Yes (Other)
  Sender: FDA-Public Use
  Company Number: 2005054161

PATIENT

DRUGS (2)
  1. GEODON [Suspect]
  2. GEODON [Suspect]
     Indication: ILL-DEFINED DISORDER

REACTIONS (2)
  - DIALYSIS [None]
  - NEUROLEPTIC MALIGNANT SYNDROME [None]
